FAERS Safety Report 5628520-2 (Version None)
Quarter: 2008Q1

REPORT INFORMATION
  Report Type: 
  Country: None (occurrence: None)
  Receive Date: 20080215
  Receipt Date: 20080204
  Transmission Date: 20080703
  Serious: Yes (Life-Threatening, Hospitalization)
  Sender: FDA-Public Use
  Company Number: DE-PFIZER INC-2008011025

PATIENT
  Sex: Male

DRUGS (16)
  1. NEURONTIN [Suspect]
     Indication: NEURALGIA
     Route: 048
     Dates: start: 20041209, end: 20041215
  2. SULFAMETHOXAZOLE AND TRIMETHOPRIM [Suspect]
     Route: 048
  3. CIPROFLOXACIN [Suspect]
     Route: 048
     Dates: start: 20041007, end: 20041217
  4. SEMPERA [Suspect]
     Route: 048
  5. COLECALCIFEROL [Suspect]
     Route: 048
     Dates: start: 20041007, end: 20041215
  6. ACYCLOVIR [Suspect]
     Route: 048
  7. HOMEOPATHIC PREPARATION [Suspect]
     Route: 048
     Dates: start: 20041007, end: 20041215
  8. RAMIPRIL [Concomitant]
     Route: 048
     Dates: start: 20041007, end: 20041203
  9. CELLCEPT [Concomitant]
     Route: 048
     Dates: start: 20041101, end: 20041203
  10. AMEU [Concomitant]
     Route: 048
     Dates: start: 20041004, end: 20041203
  11. MAGNESIUM [Concomitant]
     Route: 048
     Dates: start: 20041007, end: 20041215
  12. CALCIUM [Concomitant]
     Route: 048
     Dates: start: 20041007, end: 20041215
  13. ETANERCEPT [Concomitant]
     Route: 058
  14. CORTISONE [Concomitant]
     Route: 048
  15. RAPAMUNE [Concomitant]
     Route: 048
  16. MTX [Concomitant]
     Route: 048
     Dates: start: 20041216, end: 20041216

REACTIONS (2)
  - STEVENS-JOHNSON SYNDROME [None]
  - TOXIC EPIDERMAL NECROLYSIS [None]
